FAERS Safety Report 21171273 (Version 2)
Quarter: 2022Q3

REPORT INFORMATION
  Report Type: Spontaneous
  Country: US (occurrence: US)
  Receive Date: 20220804
  Receipt Date: 20220919
  Transmission Date: 20221026
  Serious: Yes (Other)
  Sender: FDA-Public Use
  Company Number: US-BRISTOL-MYERS SQUIBB COMPANY-2022-085055

PATIENT
  Age: 79 Year
  Sex: Male

DRUGS (2)
  1. REVLIMID [Suspect]
     Active Substance: LENALIDOMIDE
     Indication: Plasma cell myeloma
     Dosage: DAYS 1-14 OF EACH 28 DAYS CYCLE
     Route: 048
     Dates: start: 20200323
  2. POMALYST [Suspect]
     Active Substance: POMALIDOMIDE
     Indication: Plasma cell myeloma
     Dosage: 1 CAPSULE BY MOUTH WITH WATER, WITH OR WITHOUT FOOD AT SAME TIME EACH DAY, SWALLOW CAPSULES WHOLE
     Route: 048
     Dates: start: 20201006

REACTIONS (6)
  - Thrombocytopenia [Unknown]
  - Protein total abnormal [Unknown]
  - Red blood cell count abnormal [Unknown]
  - Off label use [Unknown]
  - Dizziness [Unknown]
  - General physical health deterioration [Unknown]
